FAERS Safety Report 4890938-3 (Version None)
Quarter: 2005Q4

REPORT INFORMATION
  Report Type: 
  Country: None (occurrence: None)
  Receive Date: 20051220
  Receipt Date: 20051108
  Transmission Date: 20060501
  Serious: Yes (Other)
  Sender: FDA-Public Use
  Company Number: 424658

PATIENT
  Sex: Female

DRUGS (1)
  1. BONIVA [Suspect]
     Dosage: ORAL
     Route: 048
     Dates: start: 20050925

REACTIONS (4)
  - ADVERSE EVENT [None]
  - ARTHRALGIA [None]
  - JOINT SWELLING [None]
  - SHOULDER PAIN [None]
